FAERS Safety Report 7817954-3 (Version None)
Quarter: 2011Q4

REPORT INFORMATION
  Report Type: 
  Country: None (occurrence: None)
  Receive Date: 20111017
  Receipt Date: 20111006
  Transmission Date: 20120403
  Serious: Yes (Hospitalization)
  Sender: FDA-Public Use
  Company Number: IE-GLAXOSMITHKLINE-B0734849A

PATIENT
  Sex: Male
  Weight: 65 kg

DRUGS (1)
  1. MALARONE [Suspect]
     Indication: PROPHYLAXIS
     Dosage: 1TAB PER DAY
     Route: 048
     Dates: start: 20110601, end: 20110701

REACTIONS (3)
  - THROMBOCYTOPENIA [None]
  - HEADACHE [None]
  - PYREXIA [None]
